FAERS Safety Report 5352105-9 (Version None)
Quarter: 2007Q2

REPORT INFORMATION
  Report Type: 
  Country: None (occurrence: None)
  Receive Date: 20070606
  Receipt Date: 20070522
  Transmission Date: 20071010
  Serious: Yes (Hospitalization)
  Sender: FDA-Public Use
  Company Number: 430001L07ISR

PATIENT
  Age: 61 Year
  Sex: Female

DRUGS (5)
  1. NOVANTRONE [Suspect]
     Indication: MYELOID LEUKAEMIA
  2. GLIBLENCLAMIDE (GLIBENCLAMIDE) [Concomitant]
  3. LEVOTHYROXINE /00068001/ [Concomitant]
  4. CANDESARTAN (CANDESARTAN) [Concomitant]
  5. FLUCONAZOLE [Concomitant]

REACTIONS (4)
  - ARRHYTHMIA [None]
  - HYPOKALAEMIA [None]
  - SYNCOPE [None]
  - TORSADE DE POINTES [None]
